FAERS Safety Report 6434388-7 (Version None)
Quarter: 2009Q4

REPORT INFORMATION
  Report Type: 
  Country: None (occurrence: None)
  Receive Date: 20091110
  Receipt Date: 20081007
  Transmission Date: 20100525
  Serious: No
  Sender: FDA-Public Use
  Company Number: US-ASTRAZENECA-2009UW15374

PATIENT
  Age: 83 Year
  Sex: Female

DRUGS (3)
  1. PRILOSEC OTC [Suspect]
     Dosage: 1 TABLE, 1 /DAY FOR 366 DAYS
     Route: 048
     Dates: start: 20071007, end: 20081007
  2. BABY ASPIRIN [Concomitant]
     Dosage: UNKNOWN
  3. BLOOD PRESSURE PILL [Concomitant]
     Dosage: UNKNOWN

REACTIONS (2)
  - FEELING HOT [None]
  - INCORRECT DRUG ADMINISTRATION DURATION [None]
